FAERS Safety Report 20876915 (Version 1)
Quarter: 2022Q2

REPORT INFORMATION
  Report Type: Spontaneous
  Country: DE (occurrence: DE)
  Receive Date: 20220526
  Receipt Date: 20220526
  Transmission Date: 20220721
  Serious: Yes (Hospitalization)
  Sender: FDA-Public Use
  Company Number: None

PATIENT

DRUGS (1)
  1. TERBINAFINE [Suspect]
     Active Substance: TERBINAFINE
     Indication: Tinea pedis
     Dosage: 250 MG, (1/2 DAILY)
     Route: 048

REACTIONS (1)
  - Abscess sweat gland [Not Recovered/Not Resolved]

NARRATIVE: CASE EVENT DATE: 20210728
